FAERS Safety Report 12248239 (Version 1)
Quarter: 2016Q2

REPORT INFORMATION
  Report Type: Report from Study
  Country: IE (occurrence: IE)
  Receive Date: 20160408
  Receipt Date: 20160408
  Transmission Date: 20160815
  Serious: Yes (Hospitalization)
  Sender: FDA-Public Use
  Company Number: IE-AMGEN-IRLSL2016043234

PATIENT
  Age: 50 Year
  Sex: Female

DRUGS (10)
  1. CYCLIZINE [Concomitant]
     Active Substance: CYCLIZINE
     Dosage: 50 MG, TID
     Route: 050
  2. OXYNORM [Concomitant]
     Active Substance: OXYCODONE HYDROCHLORIDE
     Dosage: 10 MG, QD
     Route: 050
  3. ALPRAZOLAM. [Concomitant]
     Active Substance: ALPRAZOLAM
     Dosage: 0.25 MG, QD
     Route: 050
  4. TARGIN [Concomitant]
     Active Substance: NALOXONE HYDROCHLORIDE\OXYCODONE HYDROCHLORIDE
     Dosage: 40 MG, TID
     Route: 050
  5. STEMETIL                           /00013301/ [Concomitant]
     Active Substance: PROCHLORPERAZINE
     Dosage: 5 MG, TID
     Route: 050
  6. PANTOPRAZOLE [Concomitant]
     Active Substance: PANTOPRAZOLE SODIUM
     Dosage: 40 MG, QD
     Route: 050
  7. PREGABALIN. [Concomitant]
     Active Substance: PREGABALIN
     Dosage: 75 MG, QD
     Route: 050
  8. CREON [Concomitant]
     Active Substance: PANCRELIPASE AMYLASE\PANCRELIPASE LIPASE\PANCRELIPASE PROTEASE
     Dosage: 500000 UNIT, QD
     Route: 050
  9. NEULASTA [Suspect]
     Active Substance: PEGFILGRASTIM
     Indication: PANCREATIC CARCINOMA METASTATIC
     Dosage: 6 MG, POST CHEMO 3 WEEKLY CYCLE
     Route: 058
  10. NYSTATIN. [Concomitant]
     Active Substance: NYSTATIN
     Dosage: 1 ML, BID
     Route: 050

REACTIONS (4)
  - Diarrhoea [Recovered/Resolved]
  - Limb discomfort [Recovered/Resolved]
  - Hospitalisation [Recovered/Resolved]
  - Pain [Recovered/Resolved]

NARRATIVE: CASE EVENT DATE: 20160312
